FAERS Safety Report 9310996 (Version 1)
Quarter: 2013Q2

REPORT INFORMATION
  Report Type: Spontaneous
  Country: US (occurrence: None)
  Receive Date: 20130523
  Receipt Date: 20130523
  Transmission Date: 20140414
  Serious: No
  Sender: FDA-Public Use
  Company Number: None

PATIENT
  Sex: Female
  Weight: 92.4 kg

DRUGS (2)
  1. IFOSFAMIDE [Suspect]
  2. PACLITAXEL (TAXOL) [Suspect]

REACTIONS (1)
  - Neutrophil count decreased [None]
